FAERS Safety Report 9645859 (Version 1)
Quarter: 2013Q4

REPORT INFORMATION
  Report Type: Spontaneous
  Country: TR (occurrence: TR)
  Receive Date: 20131025
  Receipt Date: 20131025
  Transmission Date: 20140711
  Serious: Yes (Hospitalization)
  Sender: FDA-Public Use
  Company Number: TR-VERTEX PHARMACEUTICALS INC-2013-010672

PATIENT
  Age: 65 Year
  Sex: Male

DRUGS (4)
  1. INCIVO [Suspect]
     Indication: CHRONIC HEPATITIS C
     Dosage: 750 MG, TID
     Route: 048
     Dates: start: 20131010
  2. INCIVO [Suspect]
     Dosage: 750 MG, BID
     Route: 048
     Dates: start: 20130910, end: 20131010
  3. PEGASYS [Suspect]
     Indication: CHRONIC HEPATITIS C
     Dosage: 180 ?G, QW
     Route: 058
     Dates: start: 20130910
  4. COPEGUS [Suspect]
     Indication: CHRONIC HEPATITIS C
     Dosage: 200 MG, UNK (FIVE TIMES A DAY)
     Route: 048
     Dates: start: 20130910

REACTIONS (2)
  - Pneumonia [Recovered/Resolved]
  - Drug administration error [Recovered/Resolved]
